FAERS Safety Report 14452283 (Version 1)
Quarter: 2018Q1

REPORT INFORMATION
  Report Type: Report from Study
  Country: GB (occurrence: GB)
  Receive Date: 20180129
  Receipt Date: 20180129
  Transmission Date: 20180509
  Serious: Yes (Death)
  Sender: FDA-Public Use
  Company Number: PHHY2018GB013666

PATIENT
  Age: 68 Year
  Sex: Female

DRUGS (1)
  1. EVEROLIMUS. [Suspect]
     Active Substance: EVEROLIMUS
     Indication: METAPLASTIC BREAST CARCINOMA
     Dosage: UNK
     Route: 048
     Dates: start: 20150413, end: 201505

REACTIONS (2)
  - Death [Fatal]
  - Dry mouth [Unknown]

NARRATIVE: CASE EVENT DATE: 201505
